FAERS Safety Report 18686386 (Version 1)
Quarter: 2020Q4

REPORT INFORMATION
  Report Type: Spontaneous
  Country: MX (occurrence: MX)
  Receive Date: 20201230
  Receipt Date: 20201230
  Transmission Date: 20210114
  Serious: Yes (Hospitalization)
  Sender: FDA-Public Use
  Company Number: MX-BIOMARINAP-MX-2020-134133

PATIENT
  Age: 13 Year
  Sex: Female

DRUGS (1)
  1. NAGLAZYME [Suspect]
     Active Substance: GALSULFASE
     Indication: MUCOPOLYSACCHARIDOSIS VI
     Dosage: UNK
     Route: 065
     Dates: start: 20110623

REACTIONS (1)
  - Dizziness [Unknown]

NARRATIVE: CASE EVENT DATE: 20201220
